FAERS Safety Report 5559453-8 (Version None)
Quarter: 2007Q4

REPORT INFORMATION
  Report Type: 
  Country: None (occurrence: None)
  Receive Date: 20071214
  Receipt Date: 20070929
  Transmission Date: 20080405
  Serious: Yes (Hospitalization)
  Sender: FDA-Public Use
  Company Number: US-ABBOTT-07P-163-0419002-00

PATIENT
  Sex: Male
  Weight: 94.5 kg

DRUGS (6)
  1. HUMIRA [Suspect]
     Indication: CROHN'S DISEASE
     Route: 058
     Dates: start: 20070927, end: 20070927
  2. HUMIRA [Suspect]
     Route: 058
     Dates: start: 20070913, end: 20070913
  3. HUMIRA [Suspect]
     Route: 058
  4. PANTOPRAZOLE SODIUM [Concomitant]
     Indication: GASTROINTESTINAL ULCER
  5. POTASSIUM CHLORIDE [Concomitant]
     Indication: BLOOD POTASSIUM DECREASED
  6. HYDROCODONE BITARTRATE [Concomitant]
     Indication: PAIN
     Dosage: 7.5/650MG

REACTIONS (2)
  - MUSCLE SPASMS [None]
  - PAIN IN EXTREMITY [None]
